FAERS Safety Report 5375907-1 (Version None)
Quarter: 2007Q3

REPORT INFORMATION
  Report Type: 
  Country: None (occurrence: None)
  Receive Date: 20070702
  Receipt Date: 20070620
  Transmission Date: 20080115
  Serious: Yes (Hospitalization)
  Sender: FDA-Public Use
  Company Number: FR-JNJFOC-20070604909

PATIENT
  Age: 37 Year
  Sex: Male
  Weight: 66 kg

DRUGS (5)
  1. INFILXIMAB [Suspect]
     Route: 042
  2. INFILXIMAB [Suspect]
     Route: 042
  3. INFILXIMAB [Suspect]
     Indication: CROHN'S DISEASE
     Route: 042
  4. HYDROCORTISONE [Concomitant]
     Indication: DRUG USE FOR UNKNOWN INDICATION
  5. RETARD INSULIN [Concomitant]
     Indication: DIABETES MELLITUS

REACTIONS (1)
  - INTESTINAL RESECTION [None]
